FAERS Safety Report 4529581-4 (Version None)
Quarter: 2004Q4

REPORT INFORMATION
  Report Type: 
  Country: None (occurrence: None)
  Receive Date: 20041202
  Receipt Date: 20040928
  Transmission Date: 20050328
  Serious: No
  Sender: FDA-Public Use
  Company Number: 200420728BWH

PATIENT
  Age: 49 Year
  Sex: Male
  Weight: 67.1324 kg

DRUGS (1)
  1. LEVITRA [Suspect]
     Indication: LIBIDO INCREASED
     Dosage: 10 MG, PRN, ORAL
     Route: 048

REACTIONS (1)
  - ERECTION INCREASED [None]
